FAERS Safety Report 21208337 (Version 1)
Quarter: 2022Q3

REPORT INFORMATION
  Report Type: Report from Study
  Country: CA (occurrence: CA)
  Receive Date: 20220812
  Receipt Date: 20220812
  Transmission Date: 20221027
  Serious: Yes (Other)
  Sender: FDA-Public Use
  Company Number: CA-OTSUKA-2022_004412

PATIENT
  Age: 51 Year
  Sex: Female

DRUGS (1)
  1. ARIPIPRAZOLE [Suspect]
     Active Substance: ARIPIPRAZOLE
     Indication: Product used for unknown indication
     Dosage: 400 MG, EVERY 4 WEEKS
     Route: 030

REACTIONS (7)
  - Rheumatoid arthritis [Unknown]
  - Feeling abnormal [Unknown]
  - Mental disorder [Unknown]
  - Joint stiffness [Unknown]
  - Oedema peripheral [Unknown]
  - Pain [Unknown]
  - Agitation [Unknown]

NARRATIVE: CASE EVENT DATE: 20220307
